FAERS Safety Report 4689508-1 (Version None)
Quarter: 2005Q2

REPORT INFORMATION
  Report Type: 
  Country: None (occurrence: None)
  Receive Date: 20050614
  Receipt Date: 20050608
  Transmission Date: 20051028
  Serious: Yes (Other)
  Sender: FDA-Public Use
  Company Number: PHNU2005DE02186

PATIENT
  Sex: Female

DRUGS (1)
  1. AREDIA [Suspect]
     Indication: PLASMACYTOMA
     Dates: start: 19950101, end: 20040101

REACTIONS (1)
  - ASEPTIC NECROSIS BONE [None]
